FAERS Safety Report 14598903 (Version 1)
Quarter: 2018Q1

REPORT INFORMATION
  Report Type: Spontaneous
  Country: US (occurrence: US)
  Receive Date: 20180302
  Receipt Date: 20180302
  Transmission Date: 20180509
  Serious: Yes (Life-Threatening, Hospitalization)
  Sender: FDA-Public Use
  Company Number: None

PATIENT
  Age: 44 Year
  Sex: Male
  Weight: 102 kg

DRUGS (19)
  1. BACLOFEN 10 MG NIGHTLY AS NEEDED [Concomitant]
  2. DICLOFENAC GEL APPLY TO BOTH KNEES 4 TIMES DAILY AS NEEDED FOR PAIN [Concomitant]
  3. VENLAFAXINE [Suspect]
     Active Substance: VENLAFAXINE HYDROCHLORIDE
     Indication: DEPRESSION
     Route: 048
  4. HYDROCODONE/APAP 5/325 ONCE DAILY [Concomitant]
  5. FLINTSTONES VITAMIN DAILY [Concomitant]
  6. VITAMIN E 12,000 OIL, APPLY 24000 UNITS DAILY [Concomitant]
  7. HYDROXYZINE 75-100 MG NIGHTLY [Concomitant]
  8. CALCIUM CARBONATE LIQUID [Concomitant]
  9. DICLOFENAC 75 MG TWICE DAILY AS NEEDED FOR PAIN [Concomitant]
  10. FENTANYL PATCH 25 MCG EVERY 3 DAYS [Concomitant]
  11. CHOLECALCIFEROL 4000 UNITS DAILY [Concomitant]
  12. RAMELTEON 8 MG NIGHTLY AS NEEDED [Concomitant]
  13. TOPIRAMATE 100 MG 3 TIMES DAILY [Concomitant]
  14. CYANOCOBALAMIN 1000 MCG EVERY OTHER DAY [Concomitant]
  15. PRAZOSIN 1 MG TWICE DAILY [Concomitant]
  16. CLONAZEPAM 1 MG TWICE DAILY AND ONCE DAILY AS NEEDED [Concomitant]
  17. PREGABALIN 100 MG 3 TIMES DAILY [Concomitant]
  18. QUETIAPINE 50-100 MG NIGHTLY [Concomitant]
  19. SULFASALAZINE 1000 MG TWICE DAILY [Concomitant]

REACTIONS (9)
  - Confusional state [None]
  - Dyskinesia [None]
  - Hyperhidrosis [None]
  - Feeling abnormal [None]
  - White blood cell count increased [None]
  - Lung infiltration [None]
  - Tremor [None]
  - Pyrexia [None]
  - Cough [None]

NARRATIVE: CASE EVENT DATE: 20171010
